FAERS Safety Report 16157459 (Version 2)
Quarter: 2019Q3

REPORT INFORMATION
  Report Type: Spontaneous
  Country: US (occurrence: US)
  Receive Date: 20190404
  Receipt Date: 20190819
  Transmission Date: 20191004
  Serious: No
  Sender: FDA-Public Use
  Company Number: US-PFIZER INC-2019137605

PATIENT
  Age: 66 Year
  Sex: Female
  Weight: 87.54 kg

DRUGS (5)
  1. LYRICA [Suspect]
     Active Substance: PREGABALIN
     Indication: BACK PAIN
     Dosage: 75 MG, 2X/DAY
     Route: 048
     Dates: start: 201902
  2. NAPROSYN [Concomitant]
     Active Substance: NAPROXEN
     Dosage: UNK
  3. NAPROSYN [Concomitant]
     Active Substance: NAPROXEN
     Indication: PAIN
     Dosage: 500 MG, UNK
     Dates: end: 201902
  4. LYRICA [Suspect]
     Active Substance: PREGABALIN
     Indication: BACK DISORDER
     Dosage: UNK
     Dates: start: 2006
  5. LYRICA [Suspect]
     Active Substance: PREGABALIN
     Dosage: 10 MG, 2X/DAY

REACTIONS (5)
  - Vision blurred [Unknown]
  - Diplopia [Unknown]
  - Product use issue [Unknown]
  - Off label use [Unknown]
  - Intervertebral disc protrusion [Not Recovered/Not Resolved]

NARRATIVE: CASE EVENT DATE: 201901
